FAERS Safety Report 6462049-7 (Version None)
Quarter: 2009Q4

REPORT INFORMATION
  Report Type: 
  Country: None (occurrence: None)
  Receive Date: 20091130
  Receipt Date: 20091112
  Transmission Date: 20100525
  Serious: Yes (Hospitalization, Other)
  Sender: FDA-Public Use
  Company Number: PHHY2009BR49736

PATIENT
  Age: 54 Year
  Sex: Female

DRUGS (5)
  1. FORASEQ [Suspect]
     Indication: ASTHMA
     Dosage: 1 - 2 DF DAILY
  2. KETOPROFEN [Concomitant]
     Dosage: 150 MG, Q12H
  3. TORAGESIC [Concomitant]
     Dosage: 15 DRP, BID
  4. TORAGESIC [Concomitant]
     Dosage: UNKNOWN
  5. DORFLEX [Concomitant]
     Indication: BONE PAIN
     Dosage: 1DF DAILY
     Route: 048

REACTIONS (11)
  - FACIAL BONES FRACTURE [None]
  - FALL [None]
  - HYPERSENSITIVITY [None]
  - PAIN [None]
  - PRODUCT QUALITY ISSUE [None]
  - PRURITUS [None]
  - RASH ERYTHEMATOUS [None]
  - SOMNOLENCE [None]
  - SURGERY [None]
  - UPPER LIMB FRACTURE [None]
  - WEIGHT INCREASED [None]
